FAERS Safety Report 10382487 (Version 1)
Quarter: 2014Q3

REPORT INFORMATION
  Report Type: Report from Study
  Country: KR (occurrence: KR)
  Receive Date: 20140813
  Receipt Date: 20140813
  Transmission Date: 20150326
  Serious: Yes (Other)
  Sender: FDA-Public Use
  Company Number: KR-MYLAN-2014M1001449

PATIENT

DRUGS (8)
  1. ASPIRIN. [Concomitant]
     Active Substance: ASPIRIN
     Route: 065
  2. PANCREATIN [Concomitant]
     Active Substance: PANCRELIPASE
     Route: 065
  3. QUETIAPINE [Concomitant]
     Active Substance: QUETIAPINE
     Indication: DELIRIUM
     Route: 065
  4. GABAPENTIN. [Concomitant]
     Active Substance: GABAPENTIN
     Indication: NEURALGIA
     Route: 065
  5. DIGESTIVE ENZYMES                  /07785501/ [Concomitant]
     Route: 065
  6. GLYCYRRHIZA [Concomitant]
     Active Substance: LICORICE
     Route: 048
  7. DIMETICONE [Concomitant]
     Active Substance: DIMETHICONE
     Route: 065
  8. VALPROATE SEMISODIUM [Suspect]
     Active Substance: DIVALPROEX SODIUM
     Route: 065

REACTIONS (1)
  - Hypokalaemia [Unknown]
